FAERS Safety Report 12294593 (Version 1)
Quarter: 2016Q2

REPORT INFORMATION
  Report Type: Spontaneous
  Country: GB (occurrence: GB)
  Receive Date: 20160422
  Receipt Date: 20160422
  Transmission Date: 20160815
  Serious: Yes (Other)
  Sender: FDA-Public Use
  Company Number: GB-TEVA-653244ACC

PATIENT
  Sex: Female

DRUGS (1)
  1. NITROFURANTOIN. [Suspect]
     Active Substance: NITROFURANTOIN
     Indication: INFECTION
     Dosage: 4 DOSAGE FORMS DAILY;
     Route: 048

REACTIONS (2)
  - Blood pressure decreased [Recovering/Resolving]
  - Vision blurred [Recovered/Resolved]
